FAERS Safety Report 9340023 (Version 1)
Quarter: 2013Q2

REPORT INFORMATION
  Report Type: Spontaneous
  Country: US (occurrence: None)
  Receive Date: 20130607
  Receipt Date: 20130607
  Transmission Date: 20140414
  Serious: No
  Sender: FDA-Public Use
  Company Number: None

PATIENT
  Age: 31 Year
  Sex: Male
  Weight: 65.32 kg

DRUGS (2)
  1. STRIBILD [Suspect]
     Dosage: 1 TABLET ONCE DAILY PO
     Route: 048
  2. ADVAIR DISKUS [Suspect]
     Indication: ASTHMA
     Dosage: 1 PUFF ONCE DAILY INHAL
     Route: 055

REACTIONS (1)
  - Adrenal suppression [None]
